FAERS Safety Report 10020422 (Version 3)
Quarter: 2019Q4

REPORT INFORMATION
  Report Type: Spontaneous
  Country: BR (occurrence: BR)
  Receive Date: 20140319
  Receipt Date: 20191213
  Transmission Date: 20200122
  Serious: Yes (Death, Hospitalization, Other)
  Sender: FDA-Public Use
  Company Number: BR-AMGEN-BRASP2014018816

PATIENT
  Age: 62 Year
  Sex: Male
  Weight: 51 kg

DRUGS (3)
  1. ENBREL [Suspect]
     Active Substance: ETANERCEPT
     Indication: RHEUMATOID ARTHRITIS
     Dosage: 50 MILLIGRAM, QWK
     Route: 065
     Dates: start: 201309, end: 2015
  2. ARTROLIVE [Concomitant]
     Active Substance: CHONDROITIN SULFATE (BOVINE)\GLUCOSAMINE SULFATE
     Dosage: UNK
  3. PREDNISONE. [Concomitant]
     Active Substance: PREDNISONE
     Dosage: UNK

REACTIONS (14)
  - Corneal disorder [Fatal]
  - Cardiac infection [Fatal]
  - Bacterial infection [Fatal]
  - Corneal thinning [Fatal]
  - Cataract [Fatal]
  - Lack of injection site rotation [Fatal]
  - Blood pressure decreased [Fatal]
  - Decreased appetite [Fatal]
  - Gait inability [Fatal]
  - Wrong technique in product usage process [Fatal]
  - Injection site infection [Fatal]
  - Injection site pain [Fatal]
  - Diabetes mellitus [Fatal]
  - Injection site ulcer [Fatal]

NARRATIVE: CASE EVENT DATE: 2013
